FAERS Safety Report 9585860 (Version 1)
Quarter: 2013Q4

REPORT INFORMATION
  Report Type: Spontaneous
  Country: US (occurrence: None)
  Receive Date: 20131002
  Receipt Date: 20131002
  Transmission Date: 20140711
  Serious: Yes (Hospitalization, Other)
  Sender: FDA-Public Use
  Company Number: None

PATIENT
  Age: 76 Year
  Sex: Female

DRUGS (8)
  1. AMIODARONE [Suspect]
     Indication: ATRIAL FIBRILLATION
     Route: 048
     Dates: start: 20120112, end: 20130815
  2. LISINOPRIL 10MG [Concomitant]
  3. ASA [Concomitant]
  4. ATORVASTATIN [Concomitant]
  5. CENTRUM SILVER [Concomitant]
  6. CLOPRIDOGREL [Concomitant]
  7. OSTEO BIFLEX [Concomitant]
  8. VITAMIN B-12 [Concomitant]

REACTIONS (1)
  - Hypotension [None]
